FAERS Safety Report 20154146 (Version 1)
Quarter: 2021Q4

REPORT INFORMATION
  Report Type: Spontaneous
  Country: FR (occurrence: FR)
  Receive Date: 20211207
  Receipt Date: 20211207
  Transmission Date: 20220303
  Serious: Yes (Other)
  Sender: FDA-Public Use
  Company Number: FR-AFSSAPS-AVNT20211530

PATIENT
  Age: 54 Year
  Sex: Male

DRUGS (3)
  1. SILDENAFIL [Suspect]
     Active Substance: SILDENAFIL
     Indication: Product used for unknown indication
     Dosage: UNK(TOUTES LES 2-3 SEMAINES)
     Route: 048
  2. METHYLMETHIONINE SULFONIUM CHLORIDE [Suspect]
     Active Substance: METHYLMETHIONINE SULFONIUM CHLORIDE
     Indication: Product used for unknown indication
     Dosage: UNK (0.3 G / INJECTION OR 3G OVER 12 HOURS EVERY 2-3 WEEKS)
     Route: 042
  3. ALCOHOL [Suspect]
     Active Substance: ALCOHOL
     Indication: Product used for unknown indication
     Dosage: UNK (AT LEAST 5 IU / D)
     Route: 048

REACTIONS (1)
  - Drug dependence [Not Recovered/Not Resolved]
